FAERS Safety Report 7959379-6 (Version None)
Quarter: 2011Q4

REPORT INFORMATION
  Report Type: 
  Country: None (occurrence: None)
  Receive Date: 20111206
  Receipt Date: 20111201
  Transmission Date: 20120403
  Serious: Yes (Hospitalization)
  Sender: FDA-Public Use
  Company Number: IE-PFIZER INC-2011294218

PATIENT
  Age: 50 Year
  Sex: Male

DRUGS (1)
  1. GENOTROPIN [Suspect]
     Dosage: 0.2 MG, UNK

REACTIONS (1)
  - AMNESIA [None]
